FAERS Safety Report 16856454 (Version 2)
Quarter: 2021Q1

REPORT INFORMATION
  Report Type: Spontaneous
  Country: US (occurrence: US)
  Receive Date: 20190926
  Receipt Date: 20210224
  Transmission Date: 20210419
  Serious: Yes (Death, Hospitalization, Other)
  Sender: FDA-Public Use
  Company Number: US-GILEAD-2019-0429624

PATIENT
  Age: 23 Year
  Sex: Male
  Weight: 72.56 kg

DRUGS (69)
  1. TRUVADA [Suspect]
     Active Substance: EMTRICITABINE\TENOFOVIR DISOPROXIL FUMARATE
     Dosage: UNK
     Route: 065
     Dates: start: 20100324, end: 20130308
  2. VIREAD [Suspect]
     Active Substance: TENOFOVIR DISOPROXIL FUMARATE
     Indication: HIV INFECTION
     Dosage: UNK
     Route: 065
     Dates: start: 20130923, end: 20131009
  3. CALCIUM GLUCONATE. [Concomitant]
     Active Substance: CALCIUM GLUCONATE
  4. CLINDAMYCIN. [Concomitant]
     Active Substance: CLINDAMYCIN
  5. SUBLIMAZE [Concomitant]
     Active Substance: FENTANYL CITRATE
  6. FOLVITE [FOLIC ACID] [Concomitant]
  7. HALDOL [Concomitant]
     Active Substance: HALOPERIDOL
  8. PHENERGAN [Concomitant]
     Active Substance: PROMETHAZINE HYDROCHLORIDE
  9. SUSTIVA [Concomitant]
     Active Substance: EFAVIRENZ
  10. AUGMENTIN COMBINATION [Concomitant]
     Active Substance: AMOXICILLIN\CLAVULANATE POTASSIUM
  11. AZITHROMYCIN ANHYDROUS. [Concomitant]
     Active Substance: AZITHROMYCIN ANHYDROUS
  12. MAXIPIME [Concomitant]
     Active Substance: CEFEPIME HYDROCHLORIDE
  13. MARINOL [Concomitant]
     Active Substance: DRONABINOL
  14. ATIVAN [Concomitant]
     Active Substance: LORAZEPAM
  15. OXYCODONE [Concomitant]
     Active Substance: OXYCODONE
  16. OXYIR [Concomitant]
     Active Substance: OXYCODONE HYDROCHLORIDE
  17. PROAIR HFA [Concomitant]
     Active Substance: ALBUTEROL SULFATE
  18. PROTOPIC [Concomitant]
     Active Substance: TACROLIMUS
  19. BACTRIM DS [Concomitant]
     Active Substance: SULFAMETHOXAZOLE\TRIMETHOPRIM
  20. VIRAMUNE [Concomitant]
     Active Substance: NEVIRAPINE
  21. TRUVADA [Suspect]
     Active Substance: EMTRICITABINE\TENOFOVIR DISOPROXIL FUMARATE
     Indication: HIV INFECTION
     Dosage: UNK
     Route: 048
     Dates: start: 2008
  22. DEXTROSE. [Concomitant]
     Active Substance: DEXTROSE
  23. DIFLUCAN [Concomitant]
     Active Substance: FLUCONAZOLE
  24. MOTRIN [NAPROXEN] [Concomitant]
     Active Substance: NAPROXEN
  25. INSULIN [Concomitant]
     Active Substance: INSULIN NOS
  26. LEVAQUIN [Concomitant]
     Active Substance: LEVOFLOXACIN
  27. VALCYTE [Concomitant]
     Active Substance: VALGANCICLOVIR HYDROCHLORIDE
  28. VANCOMYCIN [Concomitant]
     Active Substance: VANCOMYCIN
  29. VITAMIN D2 [Concomitant]
     Active Substance: ERGOCALCIFEROL
  30. ZOSYN [Concomitant]
     Active Substance: PIPERACILLIN SODIUM\TAZOBACTAM SODIUM
  31. VIREAD [Suspect]
     Active Substance: TENOFOVIR DISOPROXIL FUMARATE
     Dosage: UNK
     Route: 048
     Dates: start: 2004, end: 2013
  32. UNASYN [AMPICILLIN SODIUM;SULBACTAM SODIUM] [Concomitant]
  33. LASIX [Concomitant]
     Active Substance: FUROSEMIDE
  34. VICODIN [Concomitant]
     Active Substance: ACETAMINOPHEN\HYDROCODONE BITARTRATE
  35. ZOFRAN [Concomitant]
     Active Substance: ONDANSETRON HYDROCHLORIDE
  36. SENOKOT?S [Concomitant]
     Active Substance: DOCUSATE SODIUM\SENNOSIDES
  37. ZYLOPRIM [Concomitant]
     Active Substance: ALLOPURINOL
  38. CEFTAROLINE [Concomitant]
     Active Substance: CEFTAROLINE
  39. BENADRYL [Concomitant]
     Active Substance: DIPHENHYDRAMINE HYDROCHLORIDE
  40. ZYVOX [Concomitant]
     Active Substance: LINEZOLID
  41. MYCOSTATIN [Concomitant]
     Active Substance: NYSTATIN
  42. PANTOPRAZOLE [Concomitant]
     Active Substance: PANTOPRAZOLE
  43. NORVIR [Concomitant]
     Active Substance: RITONAVIR
  44. NEBCIN [Concomitant]
     Active Substance: TOBRAMYCIN SULFATE
  45. VALTREX [Concomitant]
     Active Substance: VALACYCLOVIR HYDROCHLORIDE
  46. KALETRA [Concomitant]
     Active Substance: LOPINAVIR\RITONAVIR
  47. VIRAMUNE [Concomitant]
     Active Substance: NEVIRAPINE
  48. ZOVIRAX [Concomitant]
     Active Substance: ACYCLOVIR
  49. ROXICODONE [Concomitant]
     Active Substance: OXYCODONE HYDROCHLORIDE
  50. COMBIVIR [Concomitant]
     Active Substance: LAMIVUDINE\ZIDOVUDINE
  51. CHLORIDE [Concomitant]
     Active Substance: CHLORIDE ION
  52. CLONIDINE. [Concomitant]
     Active Substance: CLONIDINE
  53. ADOXA [DOXYCYCLINE] [Concomitant]
  54. COLACE [Concomitant]
     Active Substance: DOCUSATE SODIUM
  55. PROCRIT [Concomitant]
     Active Substance: ERYTHROPOIETIN
  56. FERROUS GLUCONATE [Concomitant]
     Active Substance: FERROUS GLUCONATE
  57. CYTOVENE [GANCICLOVIR] [Concomitant]
  58. IPRATROPIUM BROMIDE. [Concomitant]
     Active Substance: IPRATROPIUM BROMIDE
  59. FLAGYL [Concomitant]
     Active Substance: METRONIDAZOLE\METRONIDAZOLE HYDROCHLORIDE
  60. PAXIL [Concomitant]
     Active Substance: PAROXETINE HYDROCHLORIDE
  61. TRUVADA [Suspect]
     Active Substance: EMTRICITABINE\TENOFOVIR DISOPROXIL FUMARATE
     Dosage: UNK
     Route: 065
     Dates: start: 2007, end: 2013
  62. ALBUTEROL HFA [Concomitant]
     Active Substance: ALBUTEROL SULFATE
  63. NORVASC [Concomitant]
     Active Substance: AMLODIPINE BESYLATE
  64. ROCEPHIN [Concomitant]
     Active Substance: CEFTRIAXONE SODIUM
  65. PREZISTA [Concomitant]
     Active Substance: DARUNAVIR ETHANOLATE
  66. INTELENCE [Concomitant]
     Active Substance: ETRAVIRINE
  67. HYDROCORTISONE/PRAMOXINE [HYDROCORTISONE;PRAMOCAINE] [Concomitant]
  68. K?DUR [Concomitant]
     Active Substance: POTASSIUM CHLORIDE
  69. SODIUM CHLORIDE. [Concomitant]
     Active Substance: SODIUM CHLORIDE

REACTIONS (14)
  - Skeletal injury [Fatal]
  - Anhedonia [Not Recovered/Not Resolved]
  - Death [Fatal]
  - Chronic kidney disease [Not Recovered/Not Resolved]
  - Renal injury [Fatal]
  - Quality of life decreased [Not Recovered/Not Resolved]
  - Anxiety [Not Recovered/Not Resolved]
  - Renal failure [Recovered/Resolved]
  - Loss of personal independence in daily activities [Not Recovered/Not Resolved]
  - Fear [Not Recovered/Not Resolved]
  - Decreased activity [Not Recovered/Not Resolved]
  - Impaired work ability [Not Recovered/Not Resolved]
  - Pain [Not Recovered/Not Resolved]
  - Emotional distress [Not Recovered/Not Resolved]

NARRATIVE: CASE EVENT DATE: 20120923
